FAERS Safety Report 9070874 (Version 1)
Quarter: 2013Q1

REPORT INFORMATION
  Report Type: Spontaneous
  Country: US (occurrence: US)
  Receive Date: 20130129
  Receipt Date: 20130129
  Transmission Date: 20140127
  Serious: Yes (Hospitalization)
  Sender: FDA-Public Use
  Company Number: US-GLAXOSMITHKLINE-A0791861A

PATIENT
  Age: 46 Year
  Sex: Male
  Weight: 120.9 kg

DRUGS (1)
  1. AVANDIA [Suspect]
     Indication: DIABETES MELLITUS
     Dosage: 4MG PER DAY
     Route: 048

REACTIONS (8)
  - Myocardial infarction [Recovering/Resolving]
  - Anaemia [Unknown]
  - Cardiac failure congestive [Unknown]
  - Cardiovascular disorder [Unknown]
  - Coronary artery bypass [Unknown]
  - Transfusion [Unknown]
  - Coronary artery disease [Unknown]
  - Hypertension [Unknown]
